FAERS Safety Report 7451119-2 (Version None)
Quarter: 2011Q2

REPORT INFORMATION
  Report Type: 
  Country: None (occurrence: None)
  Receive Date: 20110429
  Receipt Date: 20110429
  Transmission Date: 20111010
  Serious: Yes (Other)
  Sender: FDA-Public Use
  Company Number: None

PATIENT
  Age: 59 Year
  Sex: Female
  Weight: 73.0291 kg

DRUGS (1)
  1. BUTRANS [Suspect]
     Indication: OSTEOARTHRITIS
     Dosage: 1 PATCH Q WEEK TRANSDERMAL
     Route: 062
     Dates: start: 20110310, end: 20110314

REACTIONS (1)
  - RASH MACULAR [None]
